FAERS Safety Report 24126894 (Version 2)
Quarter: 2024Q3

REPORT INFORMATION
  Report Type: Spontaneous
  Country: ES (occurrence: ES)
  Receive Date: 20240723
  Receipt Date: 20240801
  Transmission Date: 20241016
  Serious: Yes (Life-Threatening, Hospitalization)
  Sender: RANBAXY
  Company Number: ES-AEMPS-1514832

PATIENT
  Age: 26 Year
  Sex: Female

DRUGS (2)
  1. ALPRAZOLAM [Suspect]
     Active Substance: ALPRAZOLAM
     Indication: Behaviour disorder
     Dosage: UNK
     Route: 065
     Dates: start: 20240415
  2. QUETIAPINE [Suspect]
     Active Substance: QUETIAPINE
     Indication: Behaviour disorder
     Dosage: UNK
     Route: 065
     Dates: start: 20240411

REACTIONS (2)
  - Suicide attempt [Recovering/Resolving]
  - Depressed level of consciousness [Recovering/Resolving]

NARRATIVE: CASE EVENT DATE: 20240418
